FAERS Safety Report 5215490-4 (Version None)
Quarter: 2007Q1

REPORT INFORMATION
  Report Type: 
  Country: None (occurrence: None)
  Receive Date: 20070123
  Receipt Date: 20070110
  Transmission Date: 20070707
  Serious: Yes (Congenital Anomaly, Other)
  Sender: FDA-Public Use
  Company Number: JAGER34683

PATIENT
  Sex: Female
  Weight: 2.57 kg

DRUGS (11)
  1. HALDOL [Suspect]
     Indication: DRUG EXPOSURE DURING PREGNANCY
     Route: 015
  2. ROHYPNOL [Suspect]
     Indication: DRUG EXPOSURE DURING PREGNANCY
     Route: 015
  3. HEROIN [Suspect]
     Indication: DRUG EXPOSURE DURING PREGNANCY
     Route: 015
  4. LEVOMETHADONE [Suspect]
     Route: 015
  5. LEVOMETHADONE [Suspect]
     Route: 015
  6. LEVOMETHADONE [Suspect]
     Route: 015
  7. LEVOMETHADONE [Suspect]
     Indication: DRUG EXPOSURE DURING PREGNANCY
     Route: 015
  8. AKINETON [Suspect]
     Indication: DRUG EXPOSURE DURING PREGNANCY
     Route: 015
  9. TAVOR [Suspect]
     Indication: DRUG EXPOSURE DURING PREGNANCY
     Route: 015
  10. CODEINE SUL TAB [Suspect]
     Indication: DRUG EXPOSURE DURING PREGNANCY
     Route: 015
  11. SAROTEN [Suspect]
     Indication: DRUG EXPOSURE DURING PREGNANCY
     Route: 015

REACTIONS (3)
  - DEVELOPMENTAL COORDINATION DISORDER [None]
  - SMALL FOR DATES BABY [None]
  - STRABISMUS [None]
